FAERS Safety Report 7807342-8 (Version None)
Quarter: 2011Q4

REPORT INFORMATION
  Report Type: 
  Country: None (occurrence: None)
  Receive Date: 20111011
  Receipt Date: 20111005
  Transmission Date: 20120403
  Serious: Yes (Other)
  Sender: FDA-Public Use
  Company Number: IT-PFIZER INC-2011237398

PATIENT
  Sex: Male

DRUGS (3)
  1. PRAZEPAM [Suspect]
     Dosage: UNK
  2. EFFEXOR XR [Suspect]
     Indication: ANXIETY
  3. EFFEXOR XR [Suspect]
     Indication: DEPRESSION
     Dosage: 75 MG, 1X/DAY
     Route: 048

REACTIONS (2)
  - HEPATOMEGALY [None]
  - GAMMA-GLUTAMYLTRANSFERASE INCREASED [None]
